FAERS Safety Report 19439343 (Version 1)
Quarter: 2021Q2

REPORT INFORMATION
  Report Type: Spontaneous
  Country: CN (occurrence: CN)
  Receive Date: 20210618
  Receipt Date: 20210618
  Transmission Date: 20210717
  Serious: Yes (Hospitalization, Other)
  Sender: FDA-Public Use
  Company Number: CN-PFIZER INC-2021684886

PATIENT
  Age: 23 Month
  Sex: Female
  Weight: 10.8 kg

DRUGS (5)
  1. MERCAPTOPURINE. [Suspect]
     Active Substance: MERCAPTOPURINE
     Indication: ACUTE LYMPHOCYTIC LEUKAEMIA
     Dosage: 25 MG, 1X/DAY
     Route: 048
     Dates: start: 20210513, end: 20210521
  2. ENDOXAN?BAXTER [Suspect]
     Active Substance: CYCLOPHOSPHAMIDE
     Indication: ACUTE LYMPHOCYTIC LEUKAEMIA
     Dosage: 0.485 G, 1X/DAY
     Route: 041
     Dates: start: 20210513, end: 20210513
  3. CYTOSAR [Suspect]
     Active Substance: CYTARABINE
     Dosage: 0.025 G, 1X/DAY
     Route: 037
     Dates: start: 20210515, end: 20210515
  4. METHOTREXATE. [Suspect]
     Active Substance: METHOTREXATE
     Indication: ACUTE LYMPHOCYTIC LEUKAEMIA
     Dosage: 10 MG, 1X/DAY
     Route: 037
     Dates: start: 20210515, end: 20210515
  5. CYTOSAR [Suspect]
     Active Substance: CYTARABINE
     Indication: ACUTE LYMPHOCYTIC LEUKAEMIA
     Dosage: 0.036 G, 1X/DAY
     Route: 042
     Dates: start: 20210515, end: 20210518

REACTIONS (1)
  - Myelosuppression [Recovering/Resolving]

NARRATIVE: CASE EVENT DATE: 20210525
